FAERS Safety Report 11326737 (Version 1)
Quarter: 2015Q3

REPORT INFORMATION
  Report Type: Spontaneous
  Country: US (occurrence: US)
  Receive Date: 20150731
  Receipt Date: 20150731
  Transmission Date: 20151125
  Serious: No
  Sender: FDA-Public Use
  Company Number: US-ROCHE-1369989

PATIENT
  Sex: Female

DRUGS (4)
  1. TYLENOL [Concomitant]
     Active Substance: ACETAMINOPHEN
     Indication: HEADACHE
  2. RIBASPHERE [Suspect]
     Active Substance: RIBAVIRIN
     Indication: CHRONIC HEPATITIS C
     Route: 065
     Dates: start: 20140306
  3. SOVALDI [Suspect]
     Active Substance: SOFOSBUVIR
     Indication: CHRONIC HEPATITIS C
     Route: 065
     Dates: start: 20140306
  4. PEGASYS [Suspect]
     Active Substance: PEGINTERFERON ALFA-2A
     Indication: CHRONIC HEPATITIS C
     Route: 065
     Dates: start: 20140306

REACTIONS (14)
  - Lacrimation increased [Unknown]
  - Dyspnoea [Unknown]
  - Decreased appetite [Unknown]
  - Insomnia [Unknown]
  - Restlessness [Unknown]
  - Depression [Unknown]
  - Rhinalgia [Unknown]
  - Productive cough [Unknown]
  - Nausea [Unknown]
  - Sneezing [Unknown]
  - Asthenia [Unknown]
  - Malaise [Unknown]
  - Eye irritation [Unknown]
  - Headache [Unknown]
